FAERS Safety Report 22264870 (Version 1)
Quarter: 2023Q2

REPORT INFORMATION
  Report Type: Spontaneous
  Country: US (occurrence: None)
  Receive Date: 20230426
  Receipt Date: 20230426
  Transmission Date: 20230722
  Serious: Yes (Other)
  Sender: FDA-Public Use
  Company Number: None

PATIENT
  Sex: Female

DRUGS (12)
  1. HUMIRA [Suspect]
     Active Substance: ADALIMUMAB
     Indication: Rheumatoid arthritis
     Dosage: 40 MG/0.4ML SUBCUTANEOUS??INJECT 0.4 ML (4O MG TOTAL) UNDER THE SKIN EVERY 14 (FOURTEEN) DAYS.
     Route: 058
     Dates: start: 20210316
  2. HUMIRA [Suspect]
     Active Substance: ADALIMUMAB
     Dosage: OTHER QUANTITY : 0.4ML (40 MG TOTAL;?OTHER FREQUENCY : EVERY 14 DAYS;?
     Route: 058
  3. CHLORTHALID [Concomitant]
  4. DEXAMETH PHO [Concomitant]
  5. DICLOFENAC GEL [Concomitant]
  6. IRON [Concomitant]
  7. LEFLUNOMIDE [Concomitant]
     Active Substance: LEFLUNOMIDE
  8. LOSARTAN [Concomitant]
  9. METFORMIN [Concomitant]
  10. OMEPRAZOLE [Concomitant]
  11. POTASSIUM CHLORIDE [Concomitant]
     Active Substance: POTASSIUM CHLORIDE
  12. PREDNISONE [Concomitant]

REACTIONS (1)
  - Hysterectomy [None]
